FAERS Safety Report 19183818 (Version 2)
Quarter: 2021Q4

REPORT INFORMATION
  Report Type: Spontaneous
  Country: IT (occurrence: IT)
  Receive Date: 20210427
  Receipt Date: 20211005
  Transmission Date: 20220303
  Serious: Yes (Other)
  Sender: FDA-Public Use
  Company Number: IT-MYLANLABS-2021M1020413

PATIENT
  Age: 71 Year
  Sex: Male

DRUGS (47)
  1. ALFUZOSIN [Suspect]
     Active Substance: ALFUZOSIN
     Indication: Hypertonic bladder
     Dosage: UNK
     Route: 065
     Dates: start: 201703
  2. ALPRAZOLAM [Suspect]
     Active Substance: ALPRAZOLAM
     Indication: Sleep disorder
     Dosage: 3 MILLIGRAM, ONCE A DAY (1 MILLIGRAM, TID)
     Route: 048
     Dates: start: 2013
  3. ALPRAZOLAM [Suspect]
     Active Substance: ALPRAZOLAM
     Indication: Hypoaesthesia
  4. ALPRAZOLAM [Suspect]
     Active Substance: ALPRAZOLAM
     Indication: Pain
  5. CIPROFLOXACIN [Suspect]
     Active Substance: CIPROFLOXACIN
     Indication: Hypertonic bladder
     Dosage: UNK
     Route: 048
     Dates: start: 201703
  6. CIPROFLOXACIN [Suspect]
     Active Substance: CIPROFLOXACIN
     Indication: Prostatic adenoma
  7. KETOROLAC [Suspect]
     Active Substance: KETOROLAC TROMETHAMINE
     Indication: Pain
     Dosage: UNK
     Route: 065
  8. LEVOFLOXACIN [Suspect]
     Active Substance: LEVOFLOXACIN
     Indication: Prostatic adenoma
     Dosage: 500 MILLIGRAM
     Route: 048
     Dates: start: 201703
  9. LEVOFLOXACIN [Suspect]
     Active Substance: LEVOFLOXACIN
     Indication: Hypertonic bladder
  10. MIRTAZAPINE [Suspect]
     Active Substance: MIRTAZAPINE
     Indication: Affective disorder
     Dosage: 30 MILLIGRAM
     Route: 048
     Dates: start: 2010, end: 2020
  11. MIRTAZAPINE [Suspect]
     Active Substance: MIRTAZAPINE
     Indication: Memory impairment
     Dosage: UNK
     Route: 048
     Dates: start: 2010
  12. ACETAMINOPHEN [Suspect]
     Active Substance: ACETAMINOPHEN
     Indication: Pain
     Dosage: UNK
     Route: 065
  13. PAROXETINE [Suspect]
     Active Substance: PAROXETINE
     Indication: Memory impairment
     Dosage: UNK
     Route: 048
     Dates: start: 2010
  14. PAROXETINE [Suspect]
     Active Substance: PAROXETINE
     Indication: Affective disorder
  15. SERTRALINE [Suspect]
     Active Substance: SERTRALINE HYDROCHLORIDE
     Indication: Memory impairment
     Dosage: UNK
     Route: 048
     Dates: start: 2010
  16. SERTRALINE [Suspect]
     Active Substance: SERTRALINE HYDROCHLORIDE
     Indication: Affective disorder
  17. OXYBUTYNIN. [Suspect]
     Active Substance: OXYBUTYNIN CHLORIDE
     Indication: Pain
     Dosage: UNK
     Route: 065
     Dates: start: 201703
  18. PRULIFLOXACIN [Suspect]
     Active Substance: PRULIFLOXACIN
     Indication: Hypertonic bladder
     Dosage: UNK
     Route: 065
     Dates: start: 2017
  19. PRULIFLOXACIN [Suspect]
     Active Substance: PRULIFLOXACIN
     Dosage: UNK
     Route: 065
     Dates: start: 201703
  20. POLYETHYLENE GLYCOLS [Concomitant]
     Active Substance: POLYETHYLENE GLYCOLS
     Indication: Product used for unknown indication
     Dosage: 400 MILLIGRAM
     Route: 065
  21. MIRABEGRON [Concomitant]
     Active Substance: MIRABEGRON
     Indication: Benign prostatic hyperplasia
     Dosage: UNK
     Route: 065
  22. MIRABEGRON [Concomitant]
     Active Substance: MIRABEGRON
     Indication: Dysuria
  23. ETORICOXIB [Concomitant]
     Active Substance: ETORICOXIB
     Indication: Product used for unknown indication
     Dosage: UNK
     Route: 065
     Dates: start: 201703
  24. ETORICOXIB [Concomitant]
     Active Substance: ETORICOXIB
     Dosage: 60 MILLIGRAM, ((60 MG FOR 2 WEEKS)
     Route: 065
  25. PREGABALIN [Concomitant]
     Active Substance: PREGABALIN
     Indication: Product used for unknown indication
     Dosage: UNK, ONCE A DAY(UP TO 150+75 MG PER DAY)
     Route: 065
     Dates: start: 202007
  26. ENOXAPARIN [Concomitant]
     Active Substance: ENOXAPARIN
     Indication: Product used for unknown indication
     Dosage: UNK
     Route: 058
  27. AMIKACIN [Concomitant]
     Active Substance: AMIKACIN
     Indication: Product used for unknown indication
     Dosage: UNK, ONCE A DAY(UNK UNK, BID)
     Route: 065
  28. FESOTERODINE [Concomitant]
     Active Substance: FESOTERODINE
     Indication: Product used for unknown indication
     Dosage: UNK
     Route: 065
  29. TROSPIUM [Concomitant]
     Active Substance: TROSPIUM
     Indication: Hypertonic bladder
     Dosage: UNK
     Route: 065
  30. TROSPIUM [Concomitant]
     Active Substance: TROSPIUM
     Indication: Hyperplasia
     Dosage: UNK
     Route: 048
     Dates: start: 201703
  31. QUETIAPINE [Concomitant]
     Active Substance: QUETIAPINE
     Indication: Product used for unknown indication
     Dosage: 25 MILLIGRAM, ONCE A DAY(25 MILLIGRAM, IN THE EVENING )
     Route: 065
  32. SOLIFENACIN [Concomitant]
     Active Substance: SOLIFENACIN
     Indication: Benign prostatic hyperplasia
     Dosage: UNK
     Route: 065
     Dates: start: 2014
  33. BECLOMETHASONE DIPROPIONATE [Concomitant]
     Active Substance: BECLOMETHASONE DIPROPIONATE
     Indication: Hypertonic bladder
     Dosage: UNK
     Route: 065
     Dates: start: 201703
  34. MEROPENEM [Concomitant]
     Active Substance: MEROPENEM
     Indication: Product used for unknown indication
     Dosage: UNK
     Route: 065
  35. MOMETASONE [Concomitant]
     Active Substance: MOMETASONE
     Indication: Product used for unknown indication
     Dosage: UNK UNK, PRN
     Route: 065
  36. OXYBUTYNIN. [Concomitant]
     Active Substance: OXYBUTYNIN CHLORIDE
     Indication: Hypertonic bladder
     Dosage: UNK
     Route: 065
     Dates: start: 2017
  37. CODEINE [Concomitant]
     Active Substance: CODEINE
     Indication: Product used for unknown indication
     Dosage: UNK
     Route: 065
  38. LACTULOSE [Concomitant]
     Active Substance: LACTULOSE
     Indication: Product used for unknown indication
     Dosage: UNK, ONCE A DAY,IN THE EVENING REGULATED
     Route: 065
  39. SERTRALINE [Concomitant]
     Active Substance: SERTRALINE HYDROCHLORIDE
     Indication: Memory impairment
     Route: 065
  40. SERTRALINE [Concomitant]
     Active Substance: SERTRALINE HYDROCHLORIDE
     Indication: Affective disorder
  41. SILODOSIN [Concomitant]
     Active Substance: SILODOSIN
     Indication: Product used for unknown indication
     Dosage: 8 MILLIGRAM, ONCE A DAY(8 MILLIGRAM, QD)
     Route: 065
  42. VENLAFAXINE [Concomitant]
     Active Substance: VENLAFAXINE HYDROCHLORIDE
     Indication: Product used for unknown indication
     Dosage: UNK,37.5 MG IN THE MORNING FOR SEVEN
     Route: 065
  43. DICLOFENAC SODIUM [Concomitant]
     Active Substance: DICLOFENAC SODIUM
     Indication: Product used for unknown indication
     Dosage: 100 MILLIGRAM
     Route: 065
  44. NALOXONE [Concomitant]
     Active Substance: NALOXONE
     Indication: Product used for unknown indication
     Dosage: 20 MILLIGRAM,ONE TO 3 TIMES A DAY
     Route: 065
     Dates: start: 201806
  45. MIRTAZAPINE [Concomitant]
     Active Substance: MIRTAZAPINE
     Indication: Affective disorder
     Dosage: UNK
     Route: 065
     Dates: start: 2020
  46. MIRTAZAPINE [Concomitant]
     Active Substance: MIRTAZAPINE
     Indication: Memory impairment
  47. SERENOA REPENS WHOLE [Concomitant]
     Active Substance: SERENOA REPENS WHOLE
     Indication: Hypertonic bladder
     Dosage: UNK
     Route: 065
     Dates: start: 201703

REACTIONS (28)
  - Benign prostatic hyperplasia [Recovered/Resolved]
  - Urethral stenosis [Recovered/Resolved]
  - Cystitis interstitial [Unknown]
  - Oral candidiasis [Recovered/Resolved]
  - Depression [Recovering/Resolving]
  - Rash [Unknown]
  - Micturition urgency [Recovering/Resolving]
  - Escherichia infection [Recovered/Resolved]
  - Hypertonic bladder [Recovered/Resolved]
  - Insomnia [Recovered/Resolved]
  - Condition aggravated [Recovering/Resolving]
  - Parapsoriasis [Unknown]
  - Hypoaesthesia [Recovered/Resolved]
  - Nervous system disorder [Recovered/Resolved]
  - Klebsiella infection [Unknown]
  - Sleep disorder [Recovered/Resolved]
  - Oliguria [Recovered/Resolved]
  - Weight decreased [Unknown]
  - Perineal pain [Unknown]
  - Constipation [Unknown]
  - Abdominal pain [Unknown]
  - Dysuria [Unknown]
  - Salivary gland disorder [Recovered/Resolved]
  - Intentional product misuse [Unknown]
  - Product use in unapproved indication [Unknown]
  - Drug ineffective [Unknown]
  - Exostosis [Unknown]
  - Tendon disorder [Unknown]

NARRATIVE: CASE EVENT DATE: 20130101
